FAERS Safety Report 5865916-8 (Version None)
Quarter: 2008Q3

REPORT INFORMATION
  Report Type: 
  Country: None (occurrence: None)
  Receive Date: 20080829
  Receipt Date: 20080820
  Transmission Date: 20090109
  Serious: Yes (Hospitalization)
  Sender: FDA-Public Use
  Company Number: CA-PFIZER INC-2006134964

PATIENT
  Sex: Male
  Weight: 76 kg

DRUGS (8)
  1. SU-011,248 [Suspect]
     Indication: GASTROINTESTINAL STROMAL TUMOUR
     Route: 048
  2. METOPROLOL TARTRATE [Suspect]
     Route: 048
     Dates: start: 20060707, end: 20061025
  3. CODEINE SUL TAB [Concomitant]
     Route: 048
  4. AVAPRO [Concomitant]
     Route: 048
  5. MULTI-VITAMINS [Concomitant]
     Route: 048
  6. VITAMIN D [Concomitant]
     Route: 048
  7. FISH OIL [Concomitant]
     Route: 048
  8. RABEPRAZOLE SODIUM [Concomitant]
     Route: 048

REACTIONS (1)
  - RENAL FAILURE ACUTE [None]
